FAERS Safety Report 6077975-0 (Version None)
Quarter: 2009Q1

REPORT INFORMATION
  Report Type: 
  Country: None (occurrence: None)
  Receive Date: 20090210
  Receipt Date: 20090126
  Transmission Date: 20090719
  Serious: Yes (Other)
  Sender: FDA-Public Use
  Company Number: TPH-00142

PATIENT
  Age: 33 Year
  Sex: Female

DRUGS (1)
  1. TRIQUILAR [Suspect]
     Indication: ORAL CONTRACEPTION
     Dosage: ORAL
     Route: 048

REACTIONS (7)
  - ABDOMINAL PAIN [None]
  - ANTEPARTUM HAEMORRHAGE [None]
  - DRUG EXPOSURE DURING PREGNANCY [None]
  - INAPPROPRIATE SCHEDULE OF DRUG ADMINISTRATION [None]
  - PELVIC PAIN [None]
  - PREGNANCY ON ORAL CONTRACEPTIVE [None]
  - TREATMENT NONCOMPLIANCE [None]
